FAERS Safety Report 6814603-8 (Version None)
Quarter: 2010Q3

REPORT INFORMATION
  Report Type: 
  Country: None (occurrence: None)
  Receive Date: 20100702
  Receipt Date: 20100624
  Transmission Date: 20110219
  Serious: Yes (Hospitalization)
  Sender: FDA-Public Use
  Company Number: B0663486A

PATIENT
  Age: 52 Year
  Sex: Female
  Weight: 81 kg

DRUGS (3)
  1. ALLI [Suspect]
     Indication: PRODUCT USED FOR UNKNOWN INDICATION
     Dosage: 60MG SEE DOSAGE TEXT
     Route: 048
     Dates: start: 20100401
  2. MICARDIS [Concomitant]
     Dosage: 40MG PER DAY
     Route: 065
  3. LEVOTHYROXINE SODIUM [Concomitant]
     Dosage: 100MCG PER DAY
     Route: 065

REACTIONS (2)
  - HEADACHE [None]
  - TRANSIENT GLOBAL AMNESIA [None]
